FAERS Safety Report 16424349 (Version 1)
Quarter: 2019Q2

REPORT INFORMATION
  Report Type: Spontaneous
  Country: US (occurrence: US)
  Receive Date: 20190613
  Receipt Date: 20190613
  Transmission Date: 20190711
  Serious: Yes (Other)
  Sender: FDA-Public Use
  Company Number: US-CIPLA LTD.-2019US04419

PATIENT

DRUGS (2)
  1. ALBENDAZOLE. [Suspect]
     Active Substance: ALBENDAZOLE
     Dosage: 2 DOSAGE FORM, SINGLE
     Route: 048
     Dates: start: 20190327, end: 20190327
  2. ALBENDAZOLE. [Suspect]
     Active Substance: ALBENDAZOLE
     Indication: CESTODE INFECTION
     Dosage: 2 DOSAGE FORM, SINGLE
     Route: 048
     Dates: start: 20190131, end: 20190131

REACTIONS (5)
  - Mental impairment [Unknown]
  - Malaise [Unknown]
  - Diarrhoea [Unknown]
  - Decreased appetite [Unknown]
  - Drug ineffective [Unknown]
